FAERS Safety Report 7821572-0 (Version None)
Quarter: 2011Q4

REPORT INFORMATION
  Report Type: 
  Country: None (occurrence: None)
  Receive Date: 20111018
  Receipt Date: 20110705
  Transmission Date: 20120403
  Serious: No
  Sender: FDA-Public Use
  Company Number: US-ASTRAZENECA-2011SE40047

PATIENT
  Age: 72 Year
  Sex: Female

DRUGS (4)
  1. PROAIR HFA [Concomitant]
  2. SPIRIVA [Concomitant]
  3. SEROQUEL [Concomitant]
  4. SYMBICORT [Suspect]
     Indication: CHRONIC OBSTRUCTIVE PULMONARY DISEASE
     Dosage: 320 DAILY, 160/4.5 MG TWO PUFFS TWO TIMES A DAY
     Route: 055
     Dates: start: 20110704

REACTIONS (2)
  - WRONG TECHNIQUE IN DRUG USAGE PROCESS [None]
  - TONGUE DISCOLOURATION [None]
